FAERS Safety Report 14249450 (Version 1)
Quarter: 2017Q4

REPORT INFORMATION
  Report Type: Spontaneous
  Country: US (occurrence: US)
  Receive Date: 20171204
  Receipt Date: 20171204
  Transmission Date: 20180321
  Serious: Yes (Hospitalization)
  Sender: FDA-Public Use
  Company Number: US-BEH-2017085474

PATIENT
  Sex: Female
  Weight: 47.17 kg

DRUGS (39)
  1. PRIVIGEN [Suspect]
     Active Substance: HUMAN IMMUNOGLOBULIN G
     Dosage: UNK
     Route: 042
  2. HEPARIN [Concomitant]
     Active Substance: HEPARIN SODIUM
  3. CLOPIDOGREL [Concomitant]
     Active Substance: CLOPIDOGREL BISULFATE
  4. EXCEDRIN [Concomitant]
     Active Substance: ACETAMINOPHEN\ASPIRIN\CAFFEINE
  5. VALTREX [Concomitant]
     Active Substance: VALACYCLOVIR HYDROCHLORIDE
  6. ZOVIRAX [Concomitant]
     Active Substance: ACYCLOVIR
  7. EPINEPHRINE. [Concomitant]
     Active Substance: EPINEPHRINE
  8. DULOXETINE. [Concomitant]
     Active Substance: DULOXETINE
  9. BOTOX [Concomitant]
     Active Substance: ONABOTULINUMTOXINA
  10. IVABRADINE [Concomitant]
     Active Substance: IVABRADINE
  11. PERCOCET                           /00446701/ [Concomitant]
     Active Substance: ACETAMINOPHEN\OXYCODONE HYDROCHLORIDE\OXYCODONE TEREPHTHALATE
  12. ALPRAZOLAM. [Concomitant]
     Active Substance: ALPRAZOLAM
  13. ZOLPIDEM [Concomitant]
     Active Substance: ZOLPIDEM\ZOLPIDEM TARTRATE
  14. SODIUM CHLORIDE. [Concomitant]
     Active Substance: SODIUM CHLORIDE
  15. SOLU-CORTEF [Concomitant]
     Active Substance: HYDROCORTISONE SODIUM SUCCINATE
  16. PREDNISONE. [Concomitant]
     Active Substance: PREDNISONE
  17. PROVENTIL [Concomitant]
     Active Substance: ALBUTEROL
  18. TRANSDERM SCOP [Concomitant]
     Active Substance: SCOPOLAMINE
  19. LYRICA [Concomitant]
     Active Substance: PREGABALIN
  20. FOLIC ACID. [Concomitant]
     Active Substance: FOLIC ACID
  21. NUVIGIL [Concomitant]
     Active Substance: ARMODAFINIL
  22. MIRENA [Concomitant]
     Active Substance: LEVONORGESTREL
  23. HYDROCORTISONE                     /00028602/ [Concomitant]
     Active Substance: HYDROCORTISONE
  24. PRIVIGEN [Suspect]
     Active Substance: HUMAN IMMUNOGLOBULIN G
     Indication: AUTONOMIC NEUROPATHY
     Dosage: 625 MG/KG, EVERY TWO WEEKS
     Route: 042
     Dates: start: 20170608
  25. DIPHENHYDRAMINE. [Concomitant]
     Active Substance: DIPHENHYDRAMINE
  26. NORMAL SALINE [Concomitant]
     Active Substance: SODIUM CHLORIDE
  27. FAMOTIDINE. [Concomitant]
     Active Substance: FAMOTIDINE
  28. VITAMIN D3 [Concomitant]
     Active Substance: CHOLECALCIFEROL
  29. POTASSIUM [Concomitant]
     Active Substance: POTASSIUM
  30. BACLOFEN. [Concomitant]
     Active Substance: BACLOFEN
  31. FONDAPARINUX [Concomitant]
     Active Substance: FONDAPARINUX
  32. PRIVIGEN [Suspect]
     Active Substance: HUMAN IMMUNOGLOBULIN G
     Dosage: UNK
     Route: 042
  33. PANTOPRAZOLE [Concomitant]
     Active Substance: PANTOPRAZOLE
  34. DOXYCYCLINE. [Concomitant]
     Active Substance: DOXYCYCLINE
  35. CROMOLYN                           /00082101/ [Concomitant]
     Active Substance: CROMOLYN
  36. HYDROXYCHLOROQUINE [Concomitant]
     Active Substance: HYDROXYCHLOROQUINE
  37. GABAPENTIN. [Concomitant]
     Active Substance: GABAPENTIN
  38. SIMVASTATIN. [Concomitant]
     Active Substance: SIMVASTATIN
  39. CLONAZEPAM. [Concomitant]
     Active Substance: CLONAZEPAM

REACTIONS (2)
  - Vocal cord dysfunction [Unknown]
  - Choking [Recovered/Resolved]
